FAERS Safety Report 6069904-0 (Version None)
Quarter: 2009Q1

REPORT INFORMATION
  Report Type: 
  Country: None (occurrence: None)
  Receive Date: 20090209
  Receipt Date: 20090108
  Transmission Date: 20090719
  Serious: No
  Sender: FDA-Public Use
  Company Number: US-BAYER-200910536NA

PATIENT
  Age: 26 Year
  Sex: Female
  Weight: 73 kg

DRUGS (4)
  1. MIRENA [Suspect]
     Indication: CONTRACEPTION
     Route: 015
     Dates: start: 20070904, end: 20090107
  2. LAMICTAL [Concomitant]
  3. CLONIDINE [Concomitant]
  4. TRAZODONE HCL [Concomitant]

REACTIONS (1)
  - INTRA-UTERINE CONTRACEPTIVE DEVICE EXPELLED [None]
